FAERS Safety Report 9206171 (Version 1)
Quarter: 2013Q2

REPORT INFORMATION
  Report Type: Spontaneous
  Country: US (occurrence: None)
  Receive Date: 20130401
  Receipt Date: 20130401
  Transmission Date: 20140414
  Serious: Yes (Other)
  Sender: FDA-Public Use
  Company Number: None

PATIENT
  Age: 16 Year
  Sex: Female
  Weight: 57.15 kg

DRUGS (1)
  1. STRATTERA 60 MG LILLY [Suspect]
     Indication: ATTENTION DEFICIT/HYPERACTIVITY DISORDER
     Route: 048

REACTIONS (6)
  - Mania [None]
  - Suicidal ideation [None]
  - Mood altered [None]
  - Irritability [None]
  - Social problem [None]
  - Negative thoughts [None]
